FAERS Safety Report 14338564 (Version 1)
Quarter: 2017Q4

REPORT INFORMATION
  Report Type: Spontaneous
  Country: SG (occurrence: SG)
  Receive Date: 20171229
  Receipt Date: 20171229
  Transmission Date: 20180321
  Serious: Yes (Other)
  Sender: FDA-Public Use
  Company Number: SG-TELIGENT, INC-IGIL20170781

PATIENT
  Age: 58 Year
  Sex: Male

DRUGS (1)
  1. CEFTAZIDIME. [Suspect]
     Active Substance: CEFTAZIDIME
     Indication: PRODUCT USED FOR UNKNOWN INDICATION
     Route: 065

REACTIONS (3)
  - Eosinophilia [Unknown]
  - Acute kidney injury [Unknown]
  - Rash [Unknown]

NARRATIVE: CASE EVENT DATE: 20171023
